FAERS Safety Report 8264666-0 (Version None)
Quarter: 2012Q2

REPORT INFORMATION
  Report Type: 
  Country: None (occurrence: None)
  Receive Date: 20120403
  Receipt Date: 20120323
  Transmission Date: 20120825
  Serious: Yes (Death, Hospitalization)
  Sender: FDA-Public Use
  Company Number: 2012ST000262

PATIENT
  Age: 76 Year
  Sex: Male

DRUGS (21)
  1. OXYCODONE HCL [Concomitant]
  2. ETOPOSIDE [Suspect]
     Indication: NON-HODGKIN'S LYMPHOMA
     Dates: end: 20120201
  3. FLONASE [Concomitant]
  4. ATIVAN [Concomitant]
  5. LISINOPRIL [Concomitant]
  6. OMEPRAZOLE [Concomitant]
  7. ALIGN [Concomitant]
  8. MEPRON [Concomitant]
  9. TAMSULOSIN HCL [Concomitant]
  10. MEGACE [Concomitant]
  11. CYCLOPHOSPHAMIDE [Suspect]
     Indication: NON-HODGKIN'S LYMPHOMA
     Dates: end: 20120201
  12. RITUXIMAB [Suspect]
     Indication: NON-HODGKIN'S LYMPHOMA
     Dates: end: 20120201
  13. CHOLECALCIFEROL [Concomitant]
  14. OXYCONTIN [Concomitant]
  15. SENOKOT [Concomitant]
  16. ATENOLOL [Concomitant]
  17. DOCUSATE [Concomitant]
  18. ONDANSETRON [Concomitant]
  19. OXYCODONE HCL EXTENDED-RELEASE [Concomitant]
  20. MATULANE [Suspect]
     Indication: NON-HODGKIN'S LYMPHOMA
     Dosage: 50 MG;QD;PO
     Route: 048
     Dates: start: 20111118, end: 20120201
  21. PREDNISONE TAB [Suspect]
     Indication: NON-HODGKIN'S LYMPHOMA
     Dates: end: 20120201

REACTIONS (16)
  - ABNORMAL BEHAVIOUR [None]
  - CATHETER SITE INFECTION [None]
  - STAPHYLOCOCCAL SEPSIS [None]
  - SECONDARY IMMUNODEFICIENCY [None]
  - SPINAL OSTEOARTHRITIS [None]
  - CACHEXIA [None]
  - STREPTOCOCCUS TEST POSITIVE [None]
  - CARDIAC ARREST [None]
  - HYPOKALAEMIA [None]
  - BLOOD SODIUM DECREASED [None]
  - BLOOD PRESSURE DECREASED [None]
  - LEGIONELLA TEST POSITIVE [None]
  - LOBAR PNEUMONIA [None]
  - ASTHENIA [None]
  - PLATELET COUNT DECREASED [None]
  - SOMNOLENCE [None]
